FAERS Safety Report 13416080 (Version 8)
Quarter: 2018Q1

REPORT INFORMATION
  Report Type: Spontaneous
  Country: BR (occurrence: BR)
  Receive Date: 20170406
  Receipt Date: 20180130
  Transmission Date: 20180508
  Serious: Yes (Other)
  Sender: FDA-Public Use
  Company Number: BR-GLAXOSMITHKLINE-BR2017GSK046661

PATIENT
  Age: 37 Year
  Sex: Female
  Weight: 90 kg

DRUGS (1)
  1. BENLYSTA [Suspect]
     Active Substance: BELIMUMAB
     Indication: SYSTEMIC LUPUS ERYTHEMATOSUS
     Dosage: UNK
     Route: 042
     Dates: start: 20170327

REACTIONS (11)
  - Erythema [Recovered/Resolved]
  - Drug prescribing error [Unknown]
  - Systemic lupus erythematosus [Unknown]
  - Product availability issue [Unknown]
  - Feeling hot [Unknown]
  - Skin disorder [Unknown]
  - Expired product administered [Unknown]
  - Burning sensation [Recovered/Resolved]
  - Alopecia [Unknown]
  - Inappropriate schedule of drug administration [Recovered/Resolved]
  - Drug dose omission [Not Recovered/Not Resolved]

NARRATIVE: CASE EVENT DATE: 20170410
